FAERS Safety Report 10635193 (Version 1)
Quarter: 2014Q4

REPORT INFORMATION
  Report Type: Spontaneous
  Country: DE (occurrence: DE)
  Receive Date: 20141205
  Receipt Date: 20141205
  Transmission Date: 20150529
  Serious: Yes (Hospitalization)
  Sender: FDA-Public Use
  Company Number: PHHY2014DE156605

PATIENT
  Age: 46 Year
  Sex: Female

DRUGS (2)
  1. RITONAVIR. [Interacting]
     Active Substance: RITONAVIR
     Indication: HIV INFECTION
     Route: 065
  2. FLUTICASONE [Suspect]
     Active Substance: FLUTICASONE\FLUTICASONE PROPIONATE
     Indication: CHRONIC OBSTRUCTIVE PULMONARY DISEASE
     Route: 055

REACTIONS (4)
  - Drug interaction [Unknown]
  - Cushing^s syndrome [Unknown]
  - Pneumonia cytomegaloviral [Unknown]
  - Pneumonia pseudomonal [Unknown]
